FAERS Safety Report 5246313-5 (Version None)
Quarter: 2007Q1

REPORT INFORMATION
  Report Type: 
  Country: None (occurrence: None)
  Receive Date: 20061201
  Receipt Date: 20060726
  Transmission Date: 20070707
  Serious: No
  Sender: FDA-Public Use
  Company Number: 2006PV018276

PATIENT
  Age: 51 Year
  Sex: Female

DRUGS (8)
  1. BYETTA [Suspect]
     Indication: DIABETES MELLITUS
     Dosage: 10 MCG;BID;SC
     Route: 058
  2. FORTAMET [Concomitant]
  3. BENICAR [Concomitant]
  4. RHINOCORT [Concomitant]
  5. ANUCORT-HC [Concomitant]
  6. AZMACORT [Concomitant]
  7. NEXIUM [Concomitant]
  8. PROMETHAZINE [Concomitant]

REACTIONS (11)
  - BLOOD GLUCOSE DECREASED [None]
  - BLOOD PRESSURE DECREASED [None]
  - DIZZINESS [None]
  - EAR PAIN [None]
  - FLUSHING [None]
  - INJECTION SITE IRRITATION [None]
  - NAUSEA [None]
  - TINNITUS [None]
  - VERTIGO [None]
  - VIRAL INFECTION [None]
  - WEIGHT DECREASED [None]
